FAERS Safety Report 13845892 (Version 1)
Quarter: 2017Q3

REPORT INFORMATION
  Report Type: Spontaneous
  Country: US (occurrence: US)
  Receive Date: 20170808
  Receipt Date: 20170808
  Transmission Date: 20171127
  Serious: No
  Sender: FDA-Public Use
  Company Number: US-ROCHE-722160

PATIENT
  Age: 70 Year
  Sex: Female

DRUGS (5)
  1. CALCIUM [Concomitant]
     Active Substance: CALCIUM
     Route: 065
  2. LOTRIMIN PRODUCT NOS [Concomitant]
     Route: 065
  3. SYNTHROID [Concomitant]
     Active Substance: LEVOTHYROXINE SODIUM
     Route: 065
  4. ARIMIDEX [Concomitant]
     Active Substance: ANASTROZOLE
     Route: 065
  5. BONIVA [Suspect]
     Active Substance: IBANDRONATE SODIUM
     Indication: OSTEOPOROSIS
     Route: 048

REACTIONS (6)
  - Diarrhoea [Unknown]
  - Urethral spasm [Unknown]
  - Urinary tract infection [Unknown]
  - Pollakiuria [Unknown]
  - Abdominal distension [Unknown]
  - Weight decreased [Unknown]

NARRATIVE: CASE EVENT DATE: 2006
